FAERS Safety Report 17329756 (Version 1)
Quarter: 2020Q1

REPORT INFORMATION
  Report Type: Spontaneous
  Country: US (occurrence: US)
  Receive Date: 20200110
  Receipt Date: 20200110
  Transmission Date: 20200409
  Serious: No
  Sender: FDA-Public Use
  Company Number: None

PATIENT
  Age: 76 Year
  Sex: Male

DRUGS (2)
  1. DULOXETINE (DULOXETINE HCL 30MG CAP, ORAL) [Suspect]
     Active Substance: DULOXETINE
     Indication: PAIN
  2. DULOXETINE (DULOXETINE HCL 30MG CAP, ORAL) [Suspect]
     Active Substance: DULOXETINE
     Indication: DEPRESSION
     Dates: start: 20191017, end: 20191202

REACTIONS (2)
  - Dizziness [None]
  - Sedation [None]

NARRATIVE: CASE EVENT DATE: 20191202
